FAERS Safety Report 14216266 (Version 2)
Quarter: 2017Q4

REPORT INFORMATION
  Report Type: Spontaneous
  Country: AU (occurrence: AU)
  Receive Date: 20171122
  Receipt Date: 20171123
  Transmission Date: 20180321
  Serious: No
  Sender: FDA-Public Use
  Company Number: AU-009507513-1711AUS006573

PATIENT
  Sex: Female

DRUGS (1)
  1. IMPLANON [Suspect]
     Active Substance: ETONOGESTREL
     Dosage: UNK
     Dates: end: 201709

REACTIONS (12)
  - Gastrointestinal sounds abnormal [Unknown]
  - Menstrual disorder [Unknown]
  - Adnexa uteri pain [Unknown]
  - Flatulence [Unknown]
  - Fatigue [Unknown]
  - Ovarian disorder [Unknown]
  - Feeling abnormal [Unknown]
  - Hunger [Unknown]
  - Menorrhagia [Unknown]
  - Menstruation delayed [Unknown]
  - Polyuria [Unknown]
  - Discomfort [Unknown]

NARRATIVE: CASE EVENT DATE: 201709
